FAERS Safety Report 24681549 (Version 1)
Quarter: 2024Q4

REPORT INFORMATION
  Report Type: Spontaneous
  Country: MX (occurrence: MX)
  Receive Date: 20241130
  Receipt Date: 20241130
  Transmission Date: 20250114
  Serious: Yes (Other)
  Sender: ROCHE
  Company Number: MX-ROCHE-10000145129

PATIENT
  Age: 65 Year
  Sex: Female

DRUGS (2)
  1. VABYSMO [Suspect]
     Active Substance: FARICIMAB-SVOA
     Indication: Diabetic retinal oedema
     Dosage: DOSE: 3 DOSES
     Route: 042
     Dates: start: 20240426, end: 20240927
  2. AFLIBERCEPT [Concomitant]
     Active Substance: AFLIBERCEPT
     Indication: Diabetic retinal oedema
     Dates: start: 2023, end: 20231110

REACTIONS (1)
  - Vitreous disorder [Recovering/Resolving]

NARRATIVE: CASE EVENT DATE: 20240927
